FAERS Safety Report 5015368-5 (Version None)
Quarter: 2006Q2

REPORT INFORMATION
  Report Type: 
  Country: None (occurrence: None)
  Receive Date: 20060601
  Receipt Date: 20060523
  Transmission Date: 20061013
  Serious: Yes (Hospitalization, Disabling, Other)
  Sender: FDA-Public Use
  Company Number: GB-JNJFOC-20040105574

PATIENT
  Sex: Female
  Weight: 80 kg

DRUGS (10)
  1. DURAGESIC-100 [Suspect]
     Route: 062
  2. DURAGESIC-100 [Suspect]
     Route: 062
  3. VENLAFAXINE HCL [Concomitant]
     Indication: DEPRESSION
  4. RABERPRAZOLE [Concomitant]
  5. LORAZEPAM [Concomitant]
  6. LETROZOLE [Concomitant]
     Indication: BREAST CANCER
  7. RISPERIDONE [Concomitant]
  8. RISPERIDONE [Concomitant]
  9. RISPERIDONE [Concomitant]
     Indication: PSYCHOTIC DISORDER
  10. LACTULOSE [Concomitant]
     Indication: CONSTIPATION

REACTIONS (1)
  - DELIRIUM [None]
